FAERS Safety Report 18767305 (Version 1)
Quarter: 2021Q1

REPORT INFORMATION
  Report Type: Spontaneous
  Country: NO (occurrence: NO)
  Receive Date: 20210121
  Receipt Date: 20210121
  Transmission Date: 20210419
  Serious: Yes (Life-Threatening, Hospitalization, Other)
  Sender: FDA-Public Use
  Company Number: NO-GLAXOSMITHKLINE-NO2021012933

PATIENT
  Age: 51 Year
  Sex: Female

DRUGS (4)
  1. SOBRIL [Concomitant]
     Active Substance: OXAZEPAM
     Indication: MUSCLE RELAXANT THERAPY
     Dosage: UNK UNK, TID, 25 UNKNOWN TAKEN 3 TIMES
     Route: 065
     Dates: start: 2013
  2. WELLBUTRIN [Suspect]
     Active Substance: BUPROPION HYDROCHLORIDE
     Indication: EX-TOBACCO USER
     Dosage: 300 MILLIGRAMS ONCE DAILY, THEN 150 MILLIGRAMS ONCE DAILY, LAST WEEK ENDED DRUG THERAPY FOR GOOD
     Route: 048
     Dates: end: 20201230
  3. WELLBUTRIN [Suspect]
     Active Substance: BUPROPION HYDROCHLORIDE
     Indication: ANXIETY
     Dosage: 150 MG, QD
     Route: 065
  4. ELVANSE [Concomitant]
     Active Substance: LISDEXAMFETAMINE DIMESYLATE
     Indication: ATTENTION DEFICIT HYPERACTIVITY DISORDER
     Dosage: 30 MG, QD, (30MG ONCE DAILY AND 40 MG ONCE DAILY)
     Route: 065

REACTIONS (7)
  - Therapeutic product effect decreased [Recovered/Resolved]
  - Epilepsy [Unknown]
  - Hyperhidrosis [Recovered/Resolved]
  - Nightmare [Recovering/Resolving]
  - Pruritus [Recovering/Resolving]
  - Depression [Recovering/Resolving]
  - Anxiety [Recovering/Resolving]
